FAERS Safety Report 5209453-2 (Version None)
Quarter: 2007Q1

REPORT INFORMATION
  Report Type: 
  Country: None (occurrence: None)
  Receive Date: 20070116
  Receipt Date: 20070104
  Transmission Date: 20070707
  Serious: Yes (Other)
  Sender: FDA-Public Use
  Company Number: GB-PFIZER INC-2007002078

PATIENT

DRUGS (2)
  1. ZITHROMAX [Suspect]
  2. CEFIXIME CHEWABLE [Concomitant]

REACTIONS (1)
  - DRUG SCREEN FALSE POSITIVE [None]
